FAERS Safety Report 15425011 (Version 1)
Quarter: 2018Q3

REPORT INFORMATION
  Report Type: Spontaneous
  Country: FR (occurrence: FR)
  Receive Date: 20180925
  Receipt Date: 20180925
  Transmission Date: 20181010
  Serious: Yes (Hospitalization, Other)
  Sender: FDA-Public Use
  Company Number: FR-BAYER-2018-174786

PATIENT
  Age: 63 Year
  Sex: Male
  Weight: 91 kg

DRUGS (4)
  1. STIVARGA [Suspect]
     Active Substance: REGORAFENIB
     Indication: HEPATOCELLULAR CARCINOMA
     Dosage: UNK
     Dates: start: 20180428, end: 20180629
  2. NEXAVAR [Suspect]
     Active Substance: SORAFENIB
     Indication: HEPATOCELLULAR CARCINOMA
     Dosage: UNK
     Dates: start: 20170523, end: 201706
  3. STIVARGA [Suspect]
     Active Substance: REGORAFENIB
     Indication: HEPATOCELLULAR CARCINOMA
     Dosage: DAILY DOSE, 160 MG
     Route: 048
     Dates: start: 20180321
  4. NEXAVAR [Suspect]
     Active Substance: SORAFENIB
     Indication: HEPATOCELLULAR CARCINOMA
     Dosage: DAILY DOSE, 400 MG
     Route: 048
     Dates: start: 20170626, end: 201803

REACTIONS (3)
  - Hepatocellular carcinoma [None]
  - Skin toxicity [None]
  - Hepatocellular carcinoma [None]

NARRATIVE: CASE EVENT DATE: 20171208
